FAERS Safety Report 7522937-7 (Version None)
Quarter: 2011Q2

REPORT INFORMATION
  Report Type: 
  Country: None (occurrence: None)
  Receive Date: 20110603
  Receipt Date: 20110531
  Transmission Date: 20111010
  Serious: Yes (Life-Threatening, Hospitalization)
  Sender: FDA-Public Use
  Company Number: US-US-EMD SERONO, INC.-7044995

PATIENT
  Sex: Female

DRUGS (2)
  1. REBIF [Suspect]
     Indication: PRODUCT USED FOR UNKNOWN INDICATION
     Route: 058
     Dates: start: 20060504, end: 20101101
  2. REBIF [Suspect]
     Route: 058
     Dates: start: 20101201

REACTIONS (4)
  - CARDIAC ARREST [None]
  - OVERDOSE [None]
  - BLOOD PRESSURE DECREASED [None]
  - HYPERTENSION [None]
